FAERS Safety Report 5959332-8 (Version None)
Quarter: 2008Q4

REPORT INFORMATION
  Report Type: 
  Country: None (occurrence: None)
  Receive Date: 20081120
  Receipt Date: 20081119
  Transmission Date: 20090506
  Serious: Yes (Other)
  Sender: FDA-Public Use
  Company Number: DE-BRISTOL-MYERS SQUIBB COMPANY-14390579

PATIENT
  Age: 72 Year
  Sex: Female
  Weight: 52 kg

DRUGS (1)
  1. BARACLUDE [Suspect]
     Indication: HEPATITIS B
     Route: 048
     Dates: start: 20080121, end: 20080427

REACTIONS (2)
  - DEAFNESS [None]
  - TINNITUS [None]
